FAERS Safety Report 8233647-5 (Version None)
Quarter: 2012Q1

REPORT INFORMATION
  Report Type: 
  Country: None (occurrence: None)
  Receive Date: 20120321
  Receipt Date: 20120312
  Transmission Date: 20120608
  Serious: Yes (Hospitalization)
  Sender: FDA-Public Use
  Company Number: AUR-APL-2012-01378

PATIENT
  Age: 90 Year

DRUGS (1)
  1. PIPERACILLIN AND TAZOBACTAM [Suspect]
     Indication: PNEUMONIA
     Dosage: (4.5 GM)

REACTIONS (2)
  - PRODUCT QUALITY ISSUE [None]
  - TREATMENT FAILURE [None]
